FAERS Safety Report 9460555 (Version 1)
Quarter: 2013Q3

REPORT INFORMATION
  Report Type: Report from Study
  Country: BR (occurrence: BR)
  Receive Date: 20130815
  Receipt Date: 20130815
  Transmission Date: 20140515
  Serious: Yes (Hospitalization, Other)
  Sender: FDA-Public Use
  Company Number: BR-ABBOTT-13P-020-1131816-00

PATIENT
  Age: 53 Year
  Sex: Female
  Weight: 73 kg

DRUGS (2)
  1. HUMIRA [Suspect]
     Indication: RHEUMATOID ARTHRITIS
     Route: 058
     Dates: start: 201111, end: 201305
  2. LOSARTAN [Concomitant]
     Indication: BLOOD PRESSURE ABNORMAL
     Route: 048
     Dates: start: 2011

REACTIONS (7)
  - Osteoarthritis [Unknown]
  - Osteopenia [Unknown]
  - Drug ineffective [Unknown]
  - Bone disorder [Unknown]
  - Rash erythematous [Recovered/Resolved]
  - Rash erythematous [Recovered/Resolved]
  - Arthritis infective [Unknown]
